FAERS Safety Report 6857460-6 (Version None)
Quarter: 2010Q3

REPORT INFORMATION
  Report Type: 
  Country: None (occurrence: None)
  Receive Date: 20100719
  Receipt Date: 20080117
  Transmission Date: 20110219
  Serious: No
  Sender: FDA-Public Use
  Company Number: US-PFIZER INC-2008008983

PATIENT
  Sex: Female
  Weight: 68.2 kg

DRUGS (17)
  1. CHANTIX [Suspect]
     Indication: SMOKING CESSATION THERAPY
     Dates: start: 20080101
  2. COD-LIVER OIL [Concomitant]
  3. GLUCOPHAGE [Concomitant]
  4. RELAFEN [Concomitant]
  5. ZYRTEC [Concomitant]
  6. NEURONTIN [Concomitant]
  7. PREMARIN [Concomitant]
  8. SYNTHROID [Concomitant]
  9. PRAVACHOL [Concomitant]
  10. WELLBUTRIN [Concomitant]
  11. DIOVANE [Concomitant]
  12. CALCIUM [Concomitant]
  13. VITAMIN E [Concomitant]
  14. LINSEED OIL [Concomitant]
  15. FISH OIL [Concomitant]
  16. ACETYLSALICYLIC ACID [Concomitant]
  17. CHONDROITIN/GLUCOSAMINE [Concomitant]

REACTIONS (3)
  - MALAISE [None]
  - NAUSEA [None]
  - VOMITING [None]
